FAERS Safety Report 11830944 (Version 1)
Quarter: 2015Q4

REPORT INFORMATION
  Report Type: Spontaneous
  Country: US (occurrence: None)
  Receive Date: 20151211
  Receipt Date: 20151211
  Transmission Date: 20160305
  Serious: Yes (Other)
  Sender: FDA-Public Use
  Company Number: None

PATIENT
  Age: 72 Year
  Sex: Female

DRUGS (11)
  1. DETROL [Concomitant]
     Active Substance: TOLTERODINE TARTRATE
  2. JANUVIA [Concomitant]
     Active Substance: SITAGLIPTIN PHOSPHATE
  3. ZOFRAN [Concomitant]
     Active Substance: ONDANSETRON HYDROCHLORIDE
  4. LEVOTHYROXINE. [Concomitant]
     Active Substance: LEVOTHYROXINE
  5. FERROUS GLUCONATE [Concomitant]
     Active Substance: FERROUS GLUCONATE
  6. GENOTROPIN [Concomitant]
     Active Substance: SOMATROPIN
  7. IBRANCE [Suspect]
     Active Substance: PALBOCICLIB
     Indication: NEOPLASM MALIGNANT
     Route: 048
     Dates: start: 20151126, end: 20151207
  8. LACTULOS [Concomitant]
     Active Substance: LACTULOSE
  9. LETROZOLE. [Concomitant]
     Active Substance: LETROZOLE
  10. FOLIC ACID. [Concomitant]
     Active Substance: FOLIC ACID
  11. TYLENOL [Concomitant]
     Active Substance: ACETAMINOPHEN

REACTIONS (3)
  - Fatigue [None]
  - Neuropathy peripheral [None]
  - Headache [None]

NARRATIVE: CASE EVENT DATE: 201512
